FAERS Safety Report 20365973 (Version 1)
Quarter: 2022Q1

REPORT INFORMATION
  Report Type: Other
  Country: US (occurrence: US)
  Receive Date: 20220123
  Receipt Date: 20220123
  Transmission Date: 20220424
  Serious: Yes (Hospitalization)
  Sender: FDA-Public Use
  Company Number: US-ACORDA-ACO_168220_2021

PATIENT
  Age: 72 Year
  Sex: Female

DRUGS (4)
  1. AMPYRA [Suspect]
     Active Substance: DALFAMPRIDINE
     Indication: Parkinson^s disease
     Dosage: UNK
     Route: 065
     Dates: start: 201911
  2. DALFAMPRIDINE [Suspect]
     Active Substance: DALFAMPRIDINE
     Indication: Tremor
     Dosage: UNK
     Route: 065
  3. AUBAGIO [Suspect]
     Active Substance: TERIFLUNOMIDE
     Indication: Multiple sclerosis
     Dosage: 14 MILLIGRAM, QD
     Route: 048
     Dates: start: 20150808, end: 201911
  4. BRILINTA [Suspect]
     Active Substance: TICAGRELOR
     Indication: Product used for unknown indication
     Dosage: UNK
     Route: 065

REACTIONS (17)
  - Fall [Unknown]
  - Dehydration [Unknown]
  - Heart rate increased [Unknown]
  - Adverse event [Recovered/Resolved]
  - Balance disorder [Unknown]
  - Catheterisation cardiac [Unknown]
  - Mental disorder [Unknown]
  - Movement disorder [Unknown]
  - Memory impairment [Unknown]
  - General physical health deterioration [Unknown]
  - Chills [Unknown]
  - Vitamin B12 decreased [Not Recovered/Not Resolved]
  - Dyspnoea [Unknown]
  - Musculoskeletal disorder [Unknown]
  - Off label use [Unknown]
  - Drug hypersensitivity [Not Recovered/Not Resolved]
  - Adverse event [Unknown]

NARRATIVE: CASE EVENT DATE: 20181001
